FAERS Safety Report 8966785 (Version 1)
Quarter: 2012Q4

REPORT INFORMATION
  Report Type: 
  Country: US (occurrence: US)
  Receive Date: 20121217
  Receipt Date: 20121217
  Transmission Date: 20130627
  Serious: Yes (Hospitalization)
  Sender: FDA-Public Use
  Company Number: US-PFIZER INC-2012318451

PATIENT
  Age: 91 Year
  Sex: Female
  Weight: 56.69 kg

DRUGS (4)
  1. LIPITOR [Suspect]
     Indication: HIGH CHOLESTEROL
     Dosage: 40 mg, daily
  2. CORDARONE [Suspect]
     Indication: ATRIAL FIBRILLATION
     Dosage: 400 mg, daily
     Dates: start: 20121102
  3. ALTACE [Suspect]
     Indication: BLOOD PRESSURE HIGH
     Dosage: 5 mg, daily
     Dates: start: 20121102
  4. PRADAXA [Suspect]
     Indication: ANTICOAGULANT THERAPY
     Dosage: 150 mg, daily
     Dates: start: 20121102

REACTIONS (3)
  - Atrial fibrillation [Unknown]
  - Eating disorder [Not Recovered/Not Resolved]
  - Dysgeusia [Not Recovered/Not Resolved]
